FAERS Safety Report 7063278-4 (Version None)
Quarter: 2010Q4

REPORT INFORMATION
  Report Type: 
  Country: None (occurrence: None)
  Receive Date: 20101026
  Receipt Date: 20100708
  Transmission Date: 20110411
  Serious: Yes (Other)
  Sender: FDA-Public Use
  Company Number: US-PFIZER INC-2010062502

PATIENT
  Sex: Male
  Weight: 124.7 kg

DRUGS (8)
  1. LIPITOR [Suspect]
     Indication: BLOOD CHOLESTEROL INCREASED
     Dosage: 10 MG, 1X/DAY
     Dates: start: 20090520, end: 20090920
  2. LIPITOR [Suspect]
     Indication: CEREBROVASCULAR ACCIDENT
     Dosage: 20 MG, 1X/DAY
     Route: 048
     Dates: start: 20090920, end: 20100101
  3. PLAVIX [Concomitant]
     Dosage: 75
  4. RAMIPRIL [Concomitant]
     Dosage: 10
  5. DIOVAN HCT [Concomitant]
     Dosage: 320/25
  6. AMLODIPINE [Concomitant]
     Dosage: 10 MG, 1X/DAY
  7. CARVEDILOL [Concomitant]
     Dosage: 25 MG, 2X/DAY
  8. ACETYLSALICYLIC ACID [Concomitant]
     Dosage: 81

REACTIONS (5)
  - BLOOD CREATINE PHOSPHOKINASE INCREASED [None]
  - FATIGUE [None]
  - MUSCULAR WEAKNESS [None]
  - MYALGIA [None]
  - PAIN IN EXTREMITY [None]
